FAERS Safety Report 25715336 (Version 2)
Quarter: 2025Q4

REPORT INFORMATION
  Report Type: Spontaneous
  Country: CA (occurrence: CA)
  Receive Date: 20250822
  Receipt Date: 20251223
  Transmission Date: 20260117
  Serious: Yes (Life-Threatening, Hospitalization, Other)
  Sender: AZURITY PHARMACEUTICALS
  Company Number: CA-COVIS PHARMA-AZR202508-002526

PATIENT
  Age: 72 Year
  Sex: Male
  Weight: 79 kg

DRUGS (91)
  1. OMNARIS [Suspect]
     Active Substance: CICLESONIDE
     Indication: Product used for unknown indication
     Dosage: 15 MILLIGRAM, QD
  2. OMNARIS [Suspect]
     Active Substance: CICLESONIDE
     Dosage: UNK
  3. OMNARIS [Suspect]
     Active Substance: CICLESONIDE
     Dosage: 150 MILLIGRAM, QD (1 EVERY 1 DAY)
  4. ADVAIR HFA [Suspect]
     Active Substance: FLUTICASONE PROPIONATE\SALMETEROL XINAFOATE
     Indication: Product used for unknown indication
     Dosage: 500 MILLIGRAM, QD (1 EVERY 1 DAY)
     Route: 065
  5. ADVAIR HFA [Suspect]
     Active Substance: FLUTICASONE PROPIONATE\SALMETEROL XINAFOATE
     Dosage: UNK
     Route: 065
  6. AMOXICILLIN\CLAVULANATE POTASSIUM [Suspect]
     Active Substance: AMOXICILLIN\CLAVULANATE POTASSIUM
     Indication: Product used for unknown indication
     Dosage: UNK
     Route: 065
  7. APIXABAN [Suspect]
     Active Substance: APIXABAN
     Indication: Product used for unknown indication
     Dosage: UNK
     Route: 065
  8. BUDESONIDE [Suspect]
     Active Substance: BUDESONIDE
     Indication: Product used for unknown indication
     Dosage: UNK
     Route: 065
  9. BUDESONIDE [Suspect]
     Active Substance: BUDESONIDE
     Dosage: UNK
     Route: 048
  10. BUDESONIDE [Suspect]
     Active Substance: BUDESONIDE
     Dosage: UNK
  11. CALCIUM CARBONATE\CHOLECALCIFEROL [Suspect]
     Active Substance: CALCIUM CARBONATE\CHOLECALCIFEROL
     Indication: Product used for unknown indication
     Dosage: 120 MILLIGRAM, UNK
     Route: 065
  12. DILTIAZEM [Suspect]
     Active Substance: DILTIAZEM
     Indication: Product used for unknown indication
     Dosage: 12 MILLIGRAM, UNK
     Route: 065
  13. DILTIAZEM [Suspect]
     Active Substance: DILTIAZEM
     Dosage: 12 MILLIGRAM, UNK
     Route: 065
  14. DILTIAZEM [Suspect]
     Active Substance: DILTIAZEM
     Dosage: 4 MILLIGRAM, UNK
     Route: 065
  15. DILTIAZEM [Suspect]
     Active Substance: DILTIAZEM
     Dosage: UNK
     Route: 065
  16. DILTIAZEM [Suspect]
     Active Substance: DILTIAZEM
     Dosage: 120 MILLIGRAM, UNK
     Route: 065
  17. DILTIAZEM [Suspect]
     Active Substance: DILTIAZEM
     Dosage: 120 MILLIGRAM, UNK
     Route: 065
  18. DOXAZOSIN [Suspect]
     Active Substance: DOXAZOSIN MESYLATE
     Indication: Product used for unknown indication
     Dosage: 4 MILLIGRAM
     Route: 065
  19. DOXAZOSIN [Suspect]
     Active Substance: DOXAZOSIN MESYLATE
     Dosage: 0.5 MILLIGRAM
     Route: 065
  20. DOXAZOSIN [Suspect]
     Active Substance: DOXAZOSIN MESYLATE
     Dosage: 5 MILLIGRAM
     Route: 065
  21. DOXAZOSIN [Suspect]
     Active Substance: DOXAZOSIN MESYLATE
     Dosage: 4 MILLIGRAM
     Route: 065
  22. DOXAZOSIN [Suspect]
     Active Substance: DOXAZOSIN MESYLATE
     Dosage: 5 MILLIGRAM
     Route: 065
  23. DOXAZOSIN MESYLATE [Suspect]
     Active Substance: DOXAZOSIN MESYLATE
     Indication: Product used for unknown indication
     Dosage: 5 MILLIGRAM, UNK
     Route: 065
  24. DOXAZOSIN MESYLATE [Suspect]
     Active Substance: DOXAZOSIN MESYLATE
     Dosage: 4 MILLIGRAM, UNK
     Route: 065
  25. DOXAZOSIN MESYLATE [Suspect]
     Active Substance: DOXAZOSIN MESYLATE
     Dosage: 0.5 MILLIGRAM, UNK
     Route: 065
  26. DUTASTERIDE [Suspect]
     Active Substance: DUTASTERIDE
     Indication: Product used for unknown indication
     Dosage: 10 MILLIGRAM, UNK
     Route: 065
  27. DUTASTERIDE [Suspect]
     Active Substance: DUTASTERIDE
     Dosage: 0.5 MILLIGRAM, UNK
     Route: 065
  28. DUTASTERIDE [Suspect]
     Active Substance: DUTASTERIDE
     Dosage: 5 MILLIGRAM, UNK
     Route: 065
  29. DUTASTERIDE [Suspect]
     Active Substance: DUTASTERIDE
     Dosage: 10 MILLIGRAM, QD
     Route: 065
  30. DUTASTERIDE [Suspect]
     Active Substance: DUTASTERIDE
     Dosage: 10 MILLIGRAM, QD
     Route: 065
  31. DUTASTERIDE [Suspect]
     Active Substance: DUTASTERIDE
     Dosage: 0.5 MILLIGRAM, UNK
     Route: 065
  32. ELIQUIS [Suspect]
     Active Substance: APIXABAN
     Indication: Product used for unknown indication
     Dosage: UNK
     Route: 065
  33. ERGOCALCIFEROL [Suspect]
     Active Substance: ERGOCALCIFEROL
     Indication: Product used for unknown indication
     Dosage: UNK
     Route: 065
  34. ERGOCALCIFEROL [Suspect]
     Active Substance: ERGOCALCIFEROL
     Dosage: 20 MILLIGRAM, UNK
     Route: 065
  35. ESCITALOPRAM OXALATE [Suspect]
     Active Substance: ESCITALOPRAM OXALATE
     Indication: Product used for unknown indication
     Dosage: 10 MILLIGRAM, UNK
     Route: 065
  36. ESCITALOPRAM OXALATE [Suspect]
     Active Substance: ESCITALOPRAM OXALATE
     Dosage: 2 DOSAGE FORM, BID (1 EVERY 12 HOURS)
     Route: 065
  37. ESCITALOPRAM OXALATE [Suspect]
     Active Substance: ESCITALOPRAM OXALATE
     Dosage: 2 DOSAGE FORM, UNK
     Route: 065
  38. ESCITALOPRAM OXALATE [Suspect]
     Active Substance: ESCITALOPRAM OXALATE
     Dosage: 1 DOSAGE FORM, QD (1 EVERY 1 DAY)
     Route: 065
  39. ESCITALOPRAM OXALATE [Suspect]
     Active Substance: ESCITALOPRAM OXALATE
     Dosage: 2 DOSAGE FORM, QD (1 EVERY 1 DAY)
     Route: 065
  40. ESCITALOPRAM OXALATE [Suspect]
     Active Substance: ESCITALOPRAM OXALATE
     Dosage: 10 MILLIGRAM, QD (1 EVERY 1 DAY)
     Route: 065
  41. ESCITALOPRAM OXALATE [Suspect]
     Active Substance: ESCITALOPRAM OXALATE
     Dosage: 10 MILLIGRAM, BID (1 EVERY 12 HOURS)
     Route: 065
  42. FLUTICASONE PROPIONATE\SALMETEROL XINAFOATE [Suspect]
     Active Substance: FLUTICASONE PROPIONATE\SALMETEROL XINAFOATE
     Indication: Product used for unknown indication
     Dosage: 2 DOSAGE FORM, BID (1 EVERY 12 HOURS)
     Route: 065
  43. FLUTICASONE PROPIONATE\SALMETEROL XINAFOATE [Suspect]
     Active Substance: FLUTICASONE PROPIONATE\SALMETEROL XINAFOATE
     Dosage: 2 DOSAGE FORM, UNK
     Route: 065
  44. FLUTICASONE PROPIONATE\SALMETEROL XINAFOATE [Suspect]
     Active Substance: FLUTICASONE PROPIONATE\SALMETEROL XINAFOATE
     Dosage: 500 MILLIGRAM, QD (1 EVERY 1 DAY)
     Route: 065
  45. LEVOFLOXACIN [Suspect]
     Active Substance: LEVOFLOXACIN
     Indication: Product used for unknown indication
     Dosage: 500 MILLIGRAM, UNK
     Route: 065
  46. LEVOFLOXACIN [Suspect]
     Active Substance: LEVOFLOXACIN
     Dosage: 1 EVERY 1 DAY
     Route: 065
  47. LEVOFLOXACIN [Suspect]
     Active Substance: LEVOFLOXACIN
     Dosage: 500 MILLIGRAM, QD (1 EVERY 1 DAY)
  48. LEVOFLOXACIN [Suspect]
     Active Substance: LEVOFLOXACIN
     Dosage: 3 DOSAGE FORM, QD ( (1 EVERY 1 DAY)
     Route: 065
  49. LEVOFLOXACIN [Suspect]
     Active Substance: LEVOFLOXACIN
     Dosage: 500 MILLIGRAM, UNK
     Route: 065
  50. LEVOFLOXACIN [Suspect]
     Active Substance: LEVOFLOXACIN
     Dosage: UNK, QD (1 EVERY 1 DAY)
     Route: 065
  51. LEVOFLOXACIN HEMIHYDRATE [Suspect]
     Active Substance: LEVOFLOXACIN
     Indication: Product used for unknown indication
     Dosage: 500 MILLIGRAM, QD (1 EVERY 1 DAY)
     Route: 065
  52. LEVOFLOXACIN HEMIHYDRATE [Suspect]
     Active Substance: LEVOFLOXACIN
     Dosage: 500 MILLIGRAM, UNK
     Route: 065
  53. LEVOFLOXACIN HEMIHYDRATE [Suspect]
     Active Substance: LEVOFLOXACIN
     Dosage: 500 MILLIGRAM, QD (1 EVERY 1 DAY)
     Route: 065
  54. MAGNESIUM OXIDE [Suspect]
     Active Substance: MAGNESIUM OXIDE
     Indication: Product used for unknown indication
     Dosage: UNK
     Route: 065
  55. METFORMIN [Suspect]
     Active Substance: METFORMIN HYDROCHLORIDE
     Indication: Product used for unknown indication
     Dosage: 4 DOSAGE FORM, QD (1 EVERY 1 DAY)
     Route: 065
  56. METFORMIN [Suspect]
     Active Substance: METFORMIN HYDROCHLORIDE
     Dosage: 4 DOSAGE FORM, UNK
     Route: 065
  57. METFORMIN [Suspect]
     Active Substance: METFORMIN HYDROCHLORIDE
     Dosage: UNK
     Route: 065
  58. METFORMIN [Suspect]
     Active Substance: METFORMIN HYDROCHLORIDE
     Dosage: 1 DOSAGE FORM, QD (1 EVERY 1 DAY)
     Route: 065
  59. METFORMIN [Suspect]
     Active Substance: METFORMIN HYDROCHLORIDE
     Dosage: 1 DOSAGE FORM, UNK
     Route: 065
  60. METFORMIN [Suspect]
     Active Substance: METFORMIN HYDROCHLORIDE
     Dosage: 1 DOSAGE FORM, UNK
     Route: 065
  61. METFORMIN [Suspect]
     Active Substance: METFORMIN HYDROCHLORIDE
     Dosage: UNK, QD (1 EVERY 1 DAY)
     Route: 065
  62. METFORMIN [Suspect]
     Active Substance: METFORMIN HYDROCHLORIDE
     Dosage: 1000 MILLIGRAM, UNK
     Route: 065
  63. METFORMIN [Suspect]
     Active Substance: METFORMIN HYDROCHLORIDE
     Dosage: 4 MILLIGRAM, UNK
     Route: 065
  64. METFORMIN [Suspect]
     Active Substance: METFORMIN HYDROCHLORIDE
     Dosage: 2 DOSAGE FORM, UNK
     Route: 065
  65. METFORMIN [Suspect]
     Active Substance: METFORMIN HYDROCHLORIDE
     Dosage: 2 DOSAGE FORM, UNK
     Route: 065
  66. METFORMIN [Suspect]
     Active Substance: METFORMIN HYDROCHLORIDE
     Dosage: 500 MILLIGRAM, UNK
     Route: 065
  67. MOXIFLOXACIN [Suspect]
     Active Substance: MOXIFLOXACIN
     Indication: Product used for unknown indication
     Dosage: UNK
     Route: 065
  68. MOXIFLOXACIN HYDROCHLORIDE [Suspect]
     Active Substance: MOXIFLOXACIN HYDROCHLORIDE
     Indication: Product used for unknown indication
     Dosage: 15 MILLIGRAM, QD (1 EVERY 1 DAY)
     Route: 065
  69. NUCALA [Suspect]
     Active Substance: MEPOLIZUMAB
     Indication: Product used for unknown indication
     Dosage: UNK
     Route: 065
  70. PREDNISONE [Suspect]
     Active Substance: PREDNISONE
     Indication: Product used for unknown indication
     Dosage: 15 MILLIGRAM, QD (1 EVERY 1 DAY)
     Route: 065
  71. PREDNISONE [Suspect]
     Active Substance: PREDNISONE
     Dosage: 10 MILLIGRAM, QD (1 EVERY 1 DAY)
     Route: 065
  72. PREDNISONE [Suspect]
     Active Substance: PREDNISONE
     Dosage: 5 MILLIGRAM, UNK
     Route: 065
  73. PREDNISONE [Suspect]
     Active Substance: PREDNISONE
     Dosage: 10 MILLIGRAM, UNK
     Route: 065
  74. PREDNISONE [Suspect]
     Active Substance: PREDNISONE
     Dosage: 50 MILLIGRAM, QD (1 EVERY 1 DAY)
     Route: 065
  75. PREDNISONE [Suspect]
     Active Substance: PREDNISONE
     Dosage: 15 MILLIGRAM, QD (1 EVERY 1 DAY)
     Route: 065
  76. ALBUTEROL [Suspect]
     Active Substance: ALBUTEROL
     Indication: Eosinophilic granulomatosis with polyangiitis
     Dosage: 2 DOSAGE FORM, QD (1 EVERY 1 DAY)
     Route: 065
  77. ALBUTEROL [Suspect]
     Active Substance: ALBUTEROL
     Indication: Asthma
     Dosage: 1 EVERY 1 DAY
     Route: 065
  78. ALBUTEROL [Suspect]
     Active Substance: ALBUTEROL
     Dosage: 2 MILLIGRAM, QD (1 EVERY 1 DAY)
     Route: 065
  79. ALBUTEROL [Suspect]
     Active Substance: ALBUTEROL
     Dosage: UNK
     Route: 065
  80. ALBUTEROL SULFATE [Suspect]
     Active Substance: ALBUTEROL SULFATE
     Indication: Asthma
     Dosage: 2 DOSAGE FORM, QD (1 EVERY 1 DAY)
     Route: 065
  81. ALBUTEROL SULFATE [Suspect]
     Active Substance: ALBUTEROL SULFATE
     Dosage: UNK
     Route: 065
  82. SPIRIVA [Suspect]
     Active Substance: TIOTROPIUM BROMIDE MONOHYDRATE
     Indication: Product used for unknown indication
     Dosage: 2 DOSAGE FORM, QD (1 EVERY 1 DAY)
     Route: 065
  83. SPIRIVA [Suspect]
     Active Substance: TIOTROPIUM BROMIDE MONOHYDRATE
     Dosage: 2 MILLIGRAM, QD (1 EVERY 1 DAY)
     Route: 065
  84. TIAZAC [Suspect]
     Active Substance: DILTIAZEM HYDROCHLORIDE
     Indication: Product used for unknown indication
     Dosage: 120 MILLIGRAM
     Route: 065
  85. TIAZAC [Suspect]
     Active Substance: DILTIAZEM HYDROCHLORIDE
     Dosage: 15 MILLIGRAM, QD (1 EVERY 1 DAY)
     Route: 065
  86. TIAZAC [Suspect]
     Active Substance: DILTIAZEM HYDROCHLORIDE
     Dosage: UNK
     Route: 065
  87. VITAMIN D [Suspect]
     Active Substance: VITAMIN D NOS
     Indication: Product used for unknown indication
     Dosage: UNK
     Route: 065
  88. VITAMIN D [Suspect]
     Active Substance: VITAMIN D NOS
     Dosage: 1500 INTERNATIONAL UNIT, UNK
     Route: 065
  89. VITAMIN D3 [Suspect]
     Active Substance: CHOLECALCIFEROL
     Indication: Product used for unknown indication
     Dosage: UNK
     Route: 065
  90. CHOLECALCIFEROL [Suspect]
     Active Substance: CHOLECALCIFEROL
     Indication: Product used for unknown indication
     Dosage: UNK
     Route: 065
  91. ROSUVASTATIN [Concomitant]
     Active Substance: ROSUVASTATIN
     Indication: Product used for unknown indication
     Dosage: UNK
     Route: 058

REACTIONS (41)
  - Antineutrophil cytoplasmic antibody positive [Unknown]
  - Anxiety [Unknown]
  - Arteriosclerosis [Unknown]
  - Arteriosclerosis coronary artery [Unknown]
  - Asthma [Unknown]
  - Condition aggravated [Unknown]
  - Conjunctivitis allergic [Unknown]
  - Dust allergy [Unknown]
  - Dyspnoea [Unknown]
  - Eosinophilic granulomatosis with polyangiitis [Unknown]
  - Forced expiratory volume decreased [Unknown]
  - Full blood count abnormal [Unknown]
  - Haemoptysis [Unknown]
  - Hospitalisation [Unknown]
  - Hypothyroidism [Unknown]
  - Hypoxia [Unknown]
  - Loss of personal independence in daily activities [Unknown]
  - Lung disorder [Unknown]
  - Mite allergy [Unknown]
  - Mycotic allergy [Unknown]
  - Neuritis [Unknown]
  - Neurological symptom [Unknown]
  - Nodule [Unknown]
  - Normochromic normocytic anaemia [Unknown]
  - Obstructive airways disorder [Unknown]
  - Pain in extremity [Unknown]
  - Productive cough [Unknown]
  - Pulmonary alveolar haemorrhage [Unknown]
  - Pulmonary embolism [Unknown]
  - Pulmonary fibrosis [Unknown]
  - Pulmonary vasculitis [Unknown]
  - Respiratory symptom [Unknown]
  - Skin exfoliation [Unknown]
  - Sleep disorder due to a general medical condition [Unknown]
  - Spirometry abnormal [Unknown]
  - Thrombosis [Unknown]
  - Total lung capacity abnormal [Unknown]
  - Vasculitis [Unknown]
  - Wheezing [Unknown]
  - Therapeutic product effect incomplete [Unknown]
  - Product use in unapproved indication [Unknown]
